FAERS Safety Report 6247176-1 (Version None)
Quarter: 2009Q2

REPORT INFORMATION
  Report Type: 
  Country: None (occurrence: None)
  Receive Date: 20090624
  Receipt Date: 20090624
  Transmission Date: 20091009
  Serious: Yes (Hospitalization)
  Sender: FDA-Public Use
  Company Number: None

PATIENT
  Age: 48 Year
  Sex: Female
  Weight: 70.3075 kg

DRUGS (1)
  1. PYRIDIUM 200MG AKYMA [Suspect]
     Indication: URINARY TRACT INFECTION
     Dosage: 200MG THREE TIMES DAILY PO
     Route: 048
     Dates: start: 20090609, end: 20090618

REACTIONS (2)
  - ABDOMINAL PAIN [None]
  - ABDOMINAL PAIN UPPER [None]
